FAERS Safety Report 6754301-2 (Version None)
Quarter: 2010Q2

REPORT INFORMATION
  Report Type: 
  Country: None (occurrence: None)
  Receive Date: 20100603
  Receipt Date: 20100524
  Transmission Date: 20101027
  Serious: Yes (Hospitalization, Other)
  Sender: FDA-Public Use
  Company Number: US-AMGEN-QUU414049

PATIENT
  Sex: Female

DRUGS (4)
  1. ENBREL [Suspect]
     Indication: RHEUMATOID ARTHRITIS
     Route: 058
  2. UNSPECIFIED ANTIHYPERTENSIVE AGENT [Concomitant]
  3. HUMIRA [Concomitant]
  4. RIFAMPIN [Concomitant]

REACTIONS (10)
  - ARTHRALGIA [None]
  - ARTHRITIS [None]
  - BLOOD PRESSURE INCREASED [None]
  - BONE PAIN [None]
  - CELLULITIS [None]
  - DRUG INEFFECTIVE [None]
  - JOINT SWELLING [None]
  - LYMPHADENOPATHY [None]
  - STAPHYLOCOCCAL INFECTION [None]
  - TACHYCARDIA [None]
